FAERS Safety Report 5671265-3 (Version None)
Quarter: 2008Q1

REPORT INFORMATION
  Report Type: 
  Country: None (occurrence: None)
  Receive Date: 20080318
  Receipt Date: 20080306
  Transmission Date: 20080703
  Serious: Yes (Other)
  Sender: FDA-Public Use
  Company Number: GB-PFIZER INC-2008022709

PATIENT
  Sex: Male

DRUGS (2)
  1. CHAMPIX [Suspect]
     Indication: SMOKING CESSATION THERAPY
     Route: 048
  2. CANNABIS [Concomitant]

REACTIONS (7)
  - CRYING [None]
  - DEPRESSION [None]
  - DYSPEPSIA [None]
  - ERECTILE DYSFUNCTION [None]
  - INSOMNIA [None]
  - PARANOIA [None]
  - SELF ESTEEM DECREASED [None]
